FAERS Safety Report 5513054-6 (Version None)
Quarter: 2007Q4

REPORT INFORMATION
  Report Type: 
  Country: None (occurrence: None)
  Receive Date: 20071112
  Receipt Date: 20071031
  Transmission Date: 20080405
  Serious: Yes (Death, Hospitalization)
  Sender: FDA-Public Use
  Company Number: JP-ROCHE-506522

PATIENT
  Age: 71 Year
  Sex: Female
  Weight: 51 kg

DRUGS (5)
  1. PEGASYS [Suspect]
     Indication: HEPATITIS C
     Route: 058
     Dates: start: 20070604, end: 20070618
  2. GLAKAY [Concomitant]
     Route: 048
     Dates: start: 20041001, end: 20070623
  3. FAMOTIDINE [Concomitant]
     Route: 048
     Dates: start: 20050812, end: 20070623
  4. ZYRTEC [Concomitant]
     Route: 048
     Dates: start: 20070313, end: 20070623
  5. LOXONIN [Concomitant]
     Route: 048
     Dates: start: 20041001

REACTIONS (3)
  - DISSEMINATED INTRAVASCULAR COAGULATION [None]
  - MULTI-ORGAN FAILURE [None]
  - SEPSIS [None]
